FAERS Safety Report 9203372 (Version 2)
Quarter: 2014Q1

REPORT INFORMATION
  Report Type: Spontaneous
  Country: US (occurrence: US)
  Receive Date: 20130402
  Receipt Date: 20140129
  Transmission Date: 20141002
  Serious: Yes (Hospitalization, Other)
  Sender: FDA-Public Use
  Company Number: US-BAYER-2013-039192

PATIENT
  Age: 33 Year
  Sex: Female

DRUGS (4)
  1. YAZ [Suspect]
  2. YASMIN [Suspect]
  3. TOPAMAX [Concomitant]
     Dosage: 200 MG, UNK
     Route: 048
  4. PHENTERMINE [Concomitant]
     Route: 048

REACTIONS (5)
  - Cholecystitis chronic [None]
  - Cholecystectomy [None]
  - Injury [None]
  - Emotional distress [None]
  - Pain [None]
